FAERS Safety Report 21953921 (Version 2)
Quarter: 2023Q1

REPORT INFORMATION
  Report Type: Spontaneous
  Country: JP (occurrence: JP)
  Receive Date: 20230204
  Receipt Date: 20230228
  Transmission Date: 20230418
  Serious: Yes (Hospitalization, Other)
  Sender: FDA-Public Use
  Company Number: JP-BAXTER-2023BAX011808

PATIENT
  Age: 71 Year
  Sex: Female

DRUGS (3)
  1. CYCLOPHOSPHAMIDE [Suspect]
     Active Substance: CYCLOPHOSPHAMIDE
     Indication: Breast cancer stage I
     Dosage: 4 COURSES OF POSTOPERATIVE TC THERAPY 600 MG/M2, EVERY 3 WEEKS WITHOUT INTERRUPTION OR DELAY OF THER
     Route: 065
  2. DOCETAXEL [Concomitant]
     Active Substance: DOCETAXEL
     Indication: Breast cancer stage I
     Dosage: 4 COURSES OF POSTOPERATIVE TC THERAPY 75 MG/M2 EVERY 3 WEEKS WITHOUT INTERRUPTION OR DELAY OF THERAP
     Route: 065
  3. PEGFILGRASTIM [Concomitant]
     Active Substance: PEGFILGRASTIM
     Indication: Prophylaxis
     Dosage: GENETICAL RECOMBINATION
     Route: 065

REACTIONS (5)
  - Acute biphenotypic leukaemia [Recovering/Resolving]
  - Lymphadenopathy [Recovering/Resolving]
  - White blood cell count increased [Recovering/Resolving]
  - Platelet count decreased [Recovering/Resolving]
  - Interleukin level increased [Recovering/Resolving]
